FAERS Safety Report 8225346-0 (Version None)
Quarter: 2012Q1

REPORT INFORMATION
  Report Type: 
  Country: None (occurrence: None)
  Receive Date: 20120321
  Receipt Date: 20120314
  Transmission Date: 20120608
  Serious: Yes (Other)
  Sender: FDA-Public Use
  Company Number: GB-GLAXOSMITHKLINE-B0785039A

PATIENT
  Sex: Male
  Weight: 72.7 kg

DRUGS (7)
  1. HAVRIX [Suspect]
     Indication: PROPHYLAXIS
     Dosage: 1INJ SINGLE DOSE
     Route: 065
  2. AQUEOUS CREAM + MENTHOL [Suspect]
     Indication: DRY SKIN
     Route: 065
     Dates: start: 20110101
  3. UREA CREAM [Suspect]
     Indication: DRY SKIN
     Route: 065
     Dates: start: 20110101
  4. INFLUENZA VACCINE [Suspect]
     Indication: PROPHYLAXIS
     Dosage: 1INJ SINGLE DOSE
     Route: 065
  5. BETNOVATE [Suspect]
     Indication: DRY SKIN
     Route: 065
     Dates: start: 20110101
  6. REVAXIS [Suspect]
     Indication: PROPHYLAXIS
     Dosage: 1INJ SINGLE DOSE
     Route: 065
  7. ELOCON [Suspect]
     Indication: DRY SKIN
     Route: 065
     Dates: start: 20110101

REACTIONS (1)
  - LOSS OF CONSCIOUSNESS [None]
